FAERS Safety Report 5673162-6 (Version None)
Quarter: 2008Q1

REPORT INFORMATION
  Report Type: 
  Country: None (occurrence: None)
  Receive Date: 20080319
  Receipt Date: 20080314
  Transmission Date: 20080703
  Serious: Yes (Hospitalization)
  Sender: FDA-Public Use
  Company Number: GB-BRISTOL-MYERS SQUIBB COMPANY-14094825

PATIENT
  Age: 71 Year
  Sex: Male

DRUGS (12)
  1. SINEMET CR [Suspect]
     Indication: PARKINSON'S DISEASE
     Dosage: SINEMET CR TWICE DAILY AND 1/2 SINEMET CR THREE TIMES A DAY
     Route: 048
  2. RANITIDINE [Concomitant]
     Route: 042
  3. ACETYLSALICYLIC ACID [Concomitant]
     Route: 048
  4. FUROSEMIDE [Concomitant]
     Route: 048
  5. ATENOLOL [Concomitant]
     Route: 048
  6. LISINOPRIL [Concomitant]
     Route: 048
  7. SIMVASTATIN [Concomitant]
     Route: 048
  8. ACETAMINOPHEN [Concomitant]
     Indication: PAIN
     Route: 048
  9. INSULIN [Concomitant]
     Indication: DIABETES MELLITUS MANAGEMENT
  10. MORPHINE [Concomitant]
  11. PROPRANOLOL HYDROCHLORIDE [Concomitant]
  12. POTASSIUM CHLORIDE [Concomitant]

REACTIONS (1)
  - CARDIAC OPERATION [None]
